FAERS Safety Report 5509244-9 (Version None)
Quarter: 2007Q4

REPORT INFORMATION
  Report Type: 
  Country: None (occurrence: None)
  Receive Date: 20071107
  Receipt Date: 20071016
  Transmission Date: 20080405
  Serious: No
  Sender: FDA-Public Use
  Company Number: US-BOEHRINGER INGELHEIM PHARMACEUTICALS, INC.-2007-BP-22869BP

PATIENT

DRUGS (3)
  1. CLONIDINE HCL [Suspect]
     Indication: HYPERTENSION
  2. LABETALOL HCL [Concomitant]
  3. DYNACIRC CR [Concomitant]

REACTIONS (2)
  - DRUG EFFECT DECREASED [None]
  - FEELING ABNORMAL [None]
